FAERS Safety Report 9852603 (Version 1)
Quarter: 2014Q1

REPORT INFORMATION
  Report Type: Spontaneous
  Country: US (occurrence: US)
  Receive Date: 20140129
  Receipt Date: 20140129
  Transmission Date: 20141002
  Serious: No
  Sender: FDA-Public Use
  Company Number: US-GLAXOSMITHKLINE-A1022565A

PATIENT
  Age: 50 Year
  Sex: Female

DRUGS (1)
  1. MEPRON [Suspect]
     Indication: LYME DISEASE
     Dosage: 750MG UNKNOWN
     Route: 048
     Dates: start: 20130426

REACTIONS (3)
  - Malaise [Unknown]
  - Treatment noncompliance [Unknown]
  - Infusion [Unknown]
